FAERS Safety Report 24704594 (Version 2)
Quarter: 2024Q4

REPORT INFORMATION
  Report Type: Spontaneous
  Country: US (occurrence: US)
  Receive Date: 20241206
  Receipt Date: 20241224
  Transmission Date: 20250115
  Serious: No
  Sender: SANOFI AVENTIS
  Company Number: US-SA-2024SA357251

PATIENT
  Age: 16 Year
  Sex: Female

DRUGS (5)
  1. DUPIXENT [Suspect]
     Active Substance: DUPILUMAB
     Indication: Dermatitis atopic
     Dosage: 600 MG, 1X
     Route: 058
     Dates: start: 20240917, end: 20240917
  2. DUPIXENT [Suspect]
     Active Substance: DUPILUMAB
     Indication: Hypersensitivity
     Dosage: 300 MG, QOW
     Route: 058
     Dates: start: 2024
  3. DUPIXENT [Suspect]
     Active Substance: DUPILUMAB
     Indication: Nasal congestion
  4. DUPIXENT [Suspect]
     Active Substance: DUPILUMAB
     Indication: Asthma
  5. HYRIMOZ [Concomitant]
     Active Substance: ADALIMUMAB-ADAZ
     Dosage: UNK

REACTIONS (2)
  - Inappropriate schedule of product administration [Unknown]
  - Off label use [Unknown]

NARRATIVE: CASE EVENT DATE: 20241126
